FAERS Safety Report 6259233 (Version 4)
Quarter: 2013Q4

REPORT INFORMATION
  Report Type: Spontaneous
  Country: US (occurrence: US)
  Receive Date: 20070312
  Receipt Date: 20131217
  Transmission Date: 20140711
  Serious: Yes (Other)
  Sender: FDA-Public Use
  Company Number: US-GLAXOSMITHKLINE-A0642442A

PATIENT
  Age: 25 Year
  Sex: Female

DRUGS (4)
  1. PAXIL [Suspect]
     Indication: MAJOR DEPRESSION
     Dosage: 20MG PER DAY
     Route: 048
     Dates: start: 1997
  2. PAROXETINE HYDROCHLORIDE [Suspect]
     Indication: MAJOR DEPRESSION
     Dosage: 20MG PER DAY
     Route: 048
     Dates: start: 1997
  3. PRENATAL VITAMINS [Concomitant]
  4. ZOFRAN [Concomitant]

REACTIONS (17)
  - Abortion induced [Unknown]
  - Drug dependence [Unknown]
  - Tremor [Unknown]
  - Chills [Unknown]
  - Pain [Unknown]
  - Withdrawal syndrome [Unknown]
  - Electric shock [Unknown]
  - Muscle twitching [Unknown]
  - Crying [Unknown]
  - Incoherent [Unknown]
  - Nightmare [Unknown]
  - Tunnel vision [Unknown]
  - Feeling abnormal [Unknown]
  - Nightmare [Unknown]
  - Anger [Unknown]
  - Tremor [Unknown]
  - Exposure during pregnancy [Unknown]
